FAERS Safety Report 6763006-3 (Version None)
Quarter: 2010Q2

REPORT INFORMATION
  Report Type: 
  Country: None (occurrence: None)
  Receive Date: 20100608
  Receipt Date: 20100608
  Transmission Date: 20101027
  Serious: Yes (Other)
  Sender: FDA-Public Use
  Company Number: None

PATIENT
  Age: 56 Year
  Sex: Female
  Weight: 101.8 kg

DRUGS (13)
  1. ORLISTAT [Suspect]
     Indication: WEIGHT CONTROL
     Dosage: 1 CAPSULE TID WITH MEALS PO
     Route: 048
     Dates: start: 20100401, end: 20100528
  2. SIMVASTATIN [Suspect]
     Indication: BLOOD CHOLESTEROL
     Dosage: 1/2 TABLET ONCE DAILY PO
     Route: 048
     Dates: start: 20040129, end: 20100528
  3. OMEPRAZOLE [Concomitant]
  4. TRASODONE` [Concomitant]
  5. RANITIDINE [Concomitant]
  6. ATENOLOL [Concomitant]
  7. TRAMADOL [Concomitant]
  8. DIPHENHYDRAMINE [Concomitant]
  9. FLONASE [Concomitant]
  10. MULTIPLE VITAMIN [Concomitant]
  11. VITAMIN D [Concomitant]
  12. ALLEGRA [Concomitant]
  13. ACETAMINOPHEN [Concomitant]

REACTIONS (2)
  - EXTERNAL EAR CELLULITIS [None]
  - LIVER FUNCTION TEST ABNORMAL [None]
